FAERS Safety Report 5925653-8 (Version None)
Quarter: 2008Q4

REPORT INFORMATION
  Report Type: 
  Country: None (occurrence: None)
  Receive Date: 20081021
  Receipt Date: 20081013
  Transmission Date: 20090506
  Serious: Yes (Other)
  Sender: FDA-Public Use
  Company Number: GB-ASTRAZENECA-2008GB01937

PATIENT
  Age: 22 Year
  Sex: Male

DRUGS (2)
  1. SEROQUEL XR [Suspect]
     Route: 048
     Dates: start: 20081009, end: 20081009
  2. SEROQUEL XR [Suspect]
     Route: 048
     Dates: start: 20081010

REACTIONS (1)
  - EOSINOPHILIA [None]
